FAERS Safety Report 5321576-6 (Version None)
Quarter: 2007Q2

REPORT INFORMATION
  Report Type: 
  Country: None (occurrence: None)
  Receive Date: 20070510
  Receipt Date: 20070502
  Transmission Date: 20071010
  Serious: Yes (Life-Threatening)
  Sender: FDA-Public Use
  Company Number: IT-ROCHE-495901

PATIENT
  Age: 64 Year
  Sex: Female

DRUGS (3)
  1. PEGASYS [Suspect]
     Dosage: FORM REPORTED AS VIAL.
     Route: 058
     Dates: start: 20070213, end: 20070418
  2. NORVASC [Concomitant]
     Route: 048
  3. BUDESONIDE/FORMOTEROL [Concomitant]
     Dosage: TRADE NAME REPORTED AS ASSIEME. GENERIC REPORTED AS BUDESONIDE/FORMOTEROL FUMARATE. FORM REPORTED A+
     Route: 055

REACTIONS (4)
  - ECCHYMOSIS [None]
  - ERYTHEMA [None]
  - LEUKOPENIA [None]
  - PRURITUS GENERALISED [None]
